FAERS Safety Report 11480812 (Version 2)
Quarter: 2015Q4

REPORT INFORMATION
  Report Type: Spontaneous
  Country: JP (occurrence: JP)
  Receive Date: 20150909
  Receipt Date: 20151020
  Transmission Date: 20160304
  Serious: Yes (Hospitalization)
  Sender: FDA-Public Use
  Company Number: JP-BAYER-2015-410622

PATIENT
  Age: 64 Month
  Sex: Female
  Weight: 18.1 kg

DRUGS (1)
  1. BAYASPIRIN [Suspect]
     Active Substance: ASPIRIN
     Indication: KAWASAKI^S DISEASE
     Dosage: 30 MG/KG, QD
     Route: 048

REACTIONS (7)
  - Yersinia infection [Recovering/Resolving]
  - Pyrexia [Recovering/Resolving]
  - Coronary artery dilatation [Recovering/Resolving]
  - Haematochezia [Recovering/Resolving]
  - Enterocolitis bacterial [Recovering/Resolving]
  - Diarrhoea [Recovering/Resolving]
  - Abdominal pain [Recovering/Resolving]
